FAERS Safety Report 26102976 (Version 1)
Quarter: 2025Q4

REPORT INFORMATION
  Report Type: Report from Study
  Country: US (occurrence: US)
  Receive Date: 20251128
  Receipt Date: 20251128
  Transmission Date: 20260119
  Serious: Yes (Hospitalization)
  Sender: ABBVIE
  Company Number: US-ABBVIE-6451579

PATIENT
  Age: 72 Year
  Sex: Male
  Weight: 77.11 kg

DRUGS (5)
  1. CREON [Suspect]
     Active Substance: PANCRELIPASE AMYLASE\PANCRELIPASE LIPASE\PANCRELIPASE PROTEASE
     Indication: Pancreatic failure
     Dosage: 1 CAP EACH AND 1 CAP EACH SNACK
     Route: 048
     Dates: start: 20250609
  2. VALACYCLOVIR HYDROCHLORIDE [Concomitant]
     Active Substance: VALACYCLOVIR HYDROCHLORIDE
     Indication: Herpes virus infection
  3. ELIQUIS [Concomitant]
     Active Substance: APIXABAN
     Indication: Thrombosis
  4. TAMSULOSIN [Concomitant]
     Active Substance: TAMSULOSIN
     Indication: Sleep disorder
  5. OMEPRAZOLE [Concomitant]
     Active Substance: OMEPRAZOLE
     Indication: Dyspepsia

REACTIONS (3)
  - Pancreatitis [Not Recovered/Not Resolved]
  - Abdominal pain [Recovered/Resolved]
  - Weight gain poor [Unknown]

NARRATIVE: CASE EVENT DATE: 20250101
